FAERS Safety Report 7973925-8 (Version None)
Quarter: 2011Q4

REPORT INFORMATION
  Report Type: 
  Country: None (occurrence: None)
  Receive Date: 20111213
  Receipt Date: 20111129
  Transmission Date: 20120403
  Serious: Yes (Hospitalization)
  Sender: FDA-Public Use
  Company Number: BE-ROCHE-1017570

PATIENT
  Age: 58 Year
  Sex: Female
  Weight: 61.8 kg

DRUGS (14)
  1. LEVOFLOXACIN [Concomitant]
     Indication: CHOLANGITIS
     Route: 048
     Dates: start: 20110811
  2. URSO FALK [Concomitant]
     Indication: CHOLANGITIS
     Route: 048
     Dates: start: 20110811
  3. OXYCODONE HCL [Concomitant]
     Indication: HERPES ZOSTER
     Route: 048
     Dates: start: 20110817
  4. AVASTIN [Suspect]
     Indication: COLON CANCER
     Route: 042
     Dates: start: 20100503
  5. ACETAMINOPHEN [Concomitant]
     Indication: PYREXIA
  6. LYRICA [Concomitant]
     Indication: HERPES ZOSTER
     Route: 048
     Dates: start: 20110823, end: 20111011
  7. DURAGESIC-100 [Concomitant]
     Indication: PAIN
     Route: 062
     Dates: start: 20110817, end: 20111010
  8. LEVOLEUCOVORIN CALCIUM [Suspect]
     Indication: COLON CANCER
     Route: 042
     Dates: start: 20100503
  9. ACETAMINOPHEN [Concomitant]
     Indication: HERPES ZOSTER
     Route: 048
     Dates: start: 20110811
  10. FLUOROURACIL [Suspect]
     Indication: COLON CANCER
     Dosage: BOLUS
     Route: 042
     Dates: start: 20100503
  11. IRINOTECAN HCL [Suspect]
     Indication: COLON CANCER
     Route: 042
     Dates: start: 20100503
  12. FLUOROURACIL [Suspect]
     Dosage: CONTINUOUS
     Route: 042
     Dates: start: 20110503
  13. TRIBVIT [Concomitant]
     Route: 048
     Dates: start: 20110615
  14. MOVIPREP [Concomitant]
     Indication: CONSTIPATION
     Route: 048
     Dates: start: 20111024

REACTIONS (13)
  - MUSCULOSKELETAL PAIN [None]
  - HERPES ZOSTER [None]
  - DRY MOUTH [None]
  - DIARRHOEA [None]
  - PYREXIA [None]
  - ASTHENIA [None]
  - MUCOSAL INFLAMMATION [None]
  - EPISTAXIS [None]
  - VIRAL INFECTION [None]
  - RHINORRHOEA [None]
  - CHOLANGITIS [None]
  - DECREASED APPETITE [None]
  - HEPATIC FUNCTION ABNORMAL [None]
